FAERS Safety Report 10233682 (Version 1)
Quarter: 2014Q1

REPORT INFORMATION
  Report Type: Spontaneous
  Country: US (occurrence: None)
  Receive Date: 20140306
  Receipt Date: 20140306
  Transmission Date: 20141002
  Serious: Yes (Other)
  Sender: FDA-Public Use
  Company Number: 163-21880-13112030

PATIENT
  Age: 62 Year
  Sex: Male

DRUGS (15)
  1. REVLIMID (LENALIDOMIDE) (2.5 MILLIGRAM, CAPSULES) [Suspect]
     Indication: MYELODYSPLASTIC SYNDROME
     Route: 048
     Dates: start: 201211, end: 201309
  2. OXYCODONE (OXYCODONE) (UNKNOWN) (OXYCODONE) [Concomitant]
  3. ARANESP (DARBEPOETIN ALFA) (UNKNOWN) [Concomitant]
  4. PHOSLO (CALCIUM ACETATE) (UNKNOWN) [Concomitant]
  5. NEULASTA (PEGFILGRASTIM) (UNKNOWN) [Concomitant]
  6. PROTONIX (UNKNOWN) [Concomitant]
  7. CALCITRIOL (CALCITRIOL) (UNKNOWN) [Concomitant]
  8. SPIRONOLACTONE (SPIRONOLACTONE) (UNKNOWN) [Concomitant]
  9. CRESTOR (ROSUVASTATIN) (UNKNOWN) [Concomitant]
  10. TOPROL (METOPROLOL SUCCINATE) (UNKNOWN) [Concomitant]
  11. EXJADE (DEFERASIROX) (UNKNOWN) [Concomitant]
  12. FUROSEMIDE (FUROSEMIDE) (UNKNOWN) [Concomitant]
  13. LEVOTHYROXINE (LEVOTHYROXINE) (UNKNOWN) [Concomitant]
  14. MAX OXIDE (UNKNOWN) [Concomitant]
  15. VITAMIN D (ERGOCALCIFEROL) (UNKNOWN) [Concomitant]

REACTIONS (1)
  - Diarrhoea [None]
